FAERS Safety Report 12162950 (Version 1)
Quarter: 2016Q1

REPORT INFORMATION
  Report Type: Spontaneous
  Country: GB (occurrence: GB)
  Receive Date: 20160309
  Receipt Date: 20160309
  Transmission Date: 20160526
  Serious: Yes (Other)
  Sender: FDA-Public Use
  Company Number: GB-ELI_LILLY_AND_COMPANY-GB201602009481

PATIENT
  Age: 63 Year
  Sex: Female
  Weight: 88 kg

DRUGS (12)
  1. RAMIPRIL. [Concomitant]
     Active Substance: RAMIPRIL
     Dosage: 1 DF, QD
     Dates: start: 20150822
  2. METFORMIN [Concomitant]
     Active Substance: METFORMIN HYDROCHLORIDE
     Dosage: 2 DF, BID
     Dates: start: 20150822
  3. SITAGLIPTIN [Concomitant]
     Active Substance: SITAGLIPTIN
     Dosage: 1 DF, QD
     Dates: start: 20150822, end: 20151221
  4. ACICLOVIR [Concomitant]
     Active Substance: ACYCLOVIR
     Dosage: 1 DF, BID
     Dates: start: 20150822
  5. AVEENO [Concomitant]
     Active Substance: DIMETHICONE\HOMOSALATE\OCTINOXATE\OCTISALATE\TITANIUM DIOXIDE
     Dosage: USE AS DIRECTED
     Dates: start: 20150914
  6. PROPRANOLOL [Concomitant]
     Active Substance: PROPRANOLOL\PROPRANOLOL HYDROCHLORIDE
     Dosage: 1 DF, TID
     Dates: start: 20150822
  7. HUMULIN M3 (MIXTURE 30/70) [Suspect]
     Active Substance: INSULIN HUMAN
     Indication: INSULIN-REQUIRING TYPE 2 DIABETES MELLITUS
     Dosage: 68 UNITS, UNKNOWN
     Route: 058
     Dates: start: 20140527, end: 20151220
  8. HUMULIN M3 (MIXTURE 30/70) [Suspect]
     Active Substance: INSULIN HUMAN
     Dosage: 68U, UNKNOWN
     Route: 058
  9. BENDROFLUMETHIAZIDE [Concomitant]
     Active Substance: BENDROFLUMETHIAZIDE
     Dosage: 1 DF, QD
     Dates: start: 20150822
  10. CITALOPRAM [Concomitant]
     Active Substance: CITALOPRAM HYDROBROMIDE
     Dosage: 1 DF, QD
     Dates: start: 20150822
  11. HUMALOG [Concomitant]
     Active Substance: INSULIN LISPRO
     Dosage: USE AS DIRECTED.
     Dates: start: 20151221
  12. SIMVASTATIN. [Concomitant]
     Active Substance: SIMVASTATIN
     Dosage: 1 DF, QD
     Dates: start: 20150822

REACTIONS (1)
  - Abdominal distension [Recovered/Resolved]

NARRATIVE: CASE EVENT DATE: 20151212
